FAERS Safety Report 26199420 (Version 1)
Quarter: 2025Q4

REPORT INFORMATION
  Report Type: Spontaneous
  Country: CA (occurrence: CA)
  Receive Date: 20251225
  Receipt Date: 20251225
  Transmission Date: 20260118
  Serious: Yes (Life-Threatening, Hospitalization, Disabling, Other)
  Sender: BRISTOL-MYERS SQUIBB COMPANY
  Company Number: CA-BRISTOL-MYERS SQUIBB COMPANY-2025-168557

PATIENT
  Age: 44 Year
  Sex: Female

DRUGS (236)
  1. ORENCIA [Suspect]
     Active Substance: ABATACEPT
     Indication: Rheumatoid arthritis
     Route: 058
  2. ORENCIA [Suspect]
     Active Substance: ABATACEPT
     Indication: Psoriatic arthropathy
     Route: 058
  3. ORENCIA [Suspect]
     Active Substance: ABATACEPT
     Route: 058
  4. ORENCIA [Suspect]
     Active Substance: ABATACEPT
     Route: 058
  5. ORENCIA [Suspect]
     Active Substance: ABATACEPT
     Route: 058
  6. ORENCIA [Suspect]
     Active Substance: ABATACEPT
     Route: 058
  7. ORENCIA [Suspect]
     Active Substance: ABATACEPT
     Indication: Rheumatoid arthritis
     Route: 017
  8. TRIAMCINOLONE ACETONIDE [Suspect]
     Active Substance: TRIAMCINOLONE ACETONIDE
     Indication: Rheumatoid arthritis
     Dosage: SUSPENSION INTRA-ARTICULAR
     Route: 014
  9. ACETAMINOPHEN [Concomitant]
     Active Substance: ACETAMINOPHEN
     Indication: Product used for unknown indication
  10. ACTEMRA [Concomitant]
     Active Substance: TOCILIZUMAB
     Indication: Product used for unknown indication
  11. ALENDRONATE SODIUM [Concomitant]
     Active Substance: ALENDRONATE SODIUM
     Indication: Product used for unknown indication
  12. ALENDRONATE SODIUM [Concomitant]
     Active Substance: ALENDRONATE SODIUM
  13. BORAGE OIL [Concomitant]
     Active Substance: BORAGE OIL
     Indication: Product used for unknown indication
  14. CELEBREX [Concomitant]
     Active Substance: CELECOXIB
     Indication: Product used for unknown indication
  15. CETIRIZINE [Concomitant]
     Active Substance: CETIRIZINE HYDROCHLORIDE
     Indication: Product used for unknown indication
  16. CETIRIZINE HYDROCHLORIDE [Concomitant]
     Active Substance: CETIRIZINE HYDROCHLORIDE
     Indication: Product used for unknown indication
  17. COSENTYX [Concomitant]
     Active Substance: SECUKINUMAB
     Indication: Product used for unknown indication
  18. COSENTYX [Concomitant]
     Active Substance: SECUKINUMAB
     Route: 005
  19. DESOXIMETASONE [Concomitant]
     Active Substance: DESOXIMETASONE
     Indication: Product used for unknown indication
  20. DEXTROMETHORPHAN HYDROBROMIDE\PSEUDOEPHEDRINE HYDROCHLORIDE\TRIPROLIDI [Concomitant]
     Active Substance: DEXTROMETHORPHAN HYDROBROMIDE\PSEUDOEPHEDRINE HYDROCHLORIDE\TRIPROLIDINE HYDROCHLORIDE
     Indication: Product used for unknown indication
  21. DICLOFENAC [Concomitant]
     Active Substance: DICLOFENAC
     Indication: Product used for unknown indication
  22. DICLOFENAC [Concomitant]
     Active Substance: DICLOFENAC
     Route: 047
  23. DICLOFENAC POTASSIUM [Concomitant]
     Active Substance: DICLOFENAC POTASSIUM
     Indication: Product used for unknown indication
  24. DICLOFENAC POTASSIUM [Concomitant]
     Active Substance: DICLOFENAC POTASSIUM
     Route: 048
  25. DICLOFENAC POTASSIUM [Concomitant]
     Active Substance: DICLOFENAC POTASSIUM
  26. HUMIRA [Concomitant]
     Active Substance: ADALIMUMAB
     Indication: Rheumatoid arthritis
     Route: 058
  27. HUMIRA [Concomitant]
     Active Substance: ADALIMUMAB
     Indication: Psoriatic arthropathy
     Route: 058
  28. HUMIRA [Concomitant]
     Active Substance: ADALIMUMAB
     Route: 058
  29. HUMIRA [Concomitant]
     Active Substance: ADALIMUMAB
  30. HUMIRA [Concomitant]
     Active Substance: ADALIMUMAB
     Dosage: SOLUTION SUBCUTANEOUS
     Route: 058
  31. HYDROCORTISONE ACETATE [Concomitant]
     Active Substance: HYDROCORTISONE ACETATE
     Indication: Product used for unknown indication
  32. HYDROCORTISONE BUTYRATE [Concomitant]
     Active Substance: HYDROCORTISONE BUTYRATE
     Indication: Rheumatoid arthritis
     Route: 048
  33. HYDROCORTISONE BUTYRATE [Concomitant]
     Active Substance: HYDROCORTISONE BUTYRATE
     Route: 058
  34. HYDROCORTISONE BUTYRATE [Concomitant]
     Active Substance: HYDROCORTISONE BUTYRATE
  35. HYDROCORTISONE SODIUM SUCCINATE [Concomitant]
     Active Substance: HYDROCORTISONE SODIUM SUCCINATE
     Indication: Rheumatoid arthritis
     Dosage: POWDER FOR SOLUTION
     Route: 058
  36. HYDROCORTISONE SODIUM SUCCINATE [Concomitant]
     Active Substance: HYDROCORTISONE SODIUM SUCCINATE
  37. HYDROXYCHLOROQUINE [Concomitant]
     Active Substance: HYDROXYCHLOROQUINE
     Indication: Rheumatoid arthritis
     Route: 048
  38. HYDROXYCHLOROQUINE [Concomitant]
     Active Substance: HYDROXYCHLOROQUINE
  39. HYDROXYCHLOROQUINE [Concomitant]
     Active Substance: HYDROXYCHLOROQUINE
     Route: 048
  40. HYDROXYCHLOROQUINE [Concomitant]
     Active Substance: HYDROXYCHLOROQUINE
     Route: 048
  41. HYDROXYCHLOROQUINE [Concomitant]
     Active Substance: HYDROXYCHLOROQUINE
     Route: 005
  42. HYDROXYCHLOROQUINE [Concomitant]
     Active Substance: HYDROXYCHLOROQUINE
  43. HYDROXYCHLOROQUINE [Concomitant]
     Active Substance: HYDROXYCHLOROQUINE
  44. HYDROXYCHLOROQUINE [Concomitant]
     Active Substance: HYDROXYCHLOROQUINE
  45. HYDROXYCHLOROQUINE [Concomitant]
     Active Substance: HYDROXYCHLOROQUINE
     Indication: Rheumatoid arthritis
  46. HYDROXYCHLOROQUINE [Concomitant]
     Active Substance: HYDROXYCHLOROQUINE
     Indication: Systemic lupus erythematosus
     Route: 048
  47. HYDROXYCHLOROQUINE [Concomitant]
     Active Substance: HYDROXYCHLOROQUINE
     Route: 048
  48. HYDROXYCHLOROQUINE [Concomitant]
     Active Substance: HYDROXYCHLOROQUINE
     Route: 066
  49. HYDROXYCHLOROQUINE [Concomitant]
     Active Substance: HYDROXYCHLOROQUINE
     Route: 048
  50. HYDROXYCHLOROQUINE [Concomitant]
     Active Substance: HYDROXYCHLOROQUINE
  51. HYDROXYCHLOROQUINE [Concomitant]
     Active Substance: HYDROXYCHLOROQUINE
     Route: 016
  52. HYDROXYCHLOROQUINE [Concomitant]
     Active Substance: HYDROXYCHLOROQUINE
     Route: 058
  53. HYDROXYCHLOROQUINE [Concomitant]
     Active Substance: HYDROXYCHLOROQUINE
  54. HYDROXYCHLOROQUINE [Concomitant]
     Active Substance: HYDROXYCHLOROQUINE
  55. HYDROXYCHLOROQUINE [Concomitant]
     Active Substance: HYDROXYCHLOROQUINE
     Route: 048
  56. HYDROXYCHLOROQUINE [Concomitant]
     Active Substance: HYDROXYCHLOROQUINE
  57. HYDROXYCHLOROQUINE [Concomitant]
     Active Substance: HYDROXYCHLOROQUINE
     Route: 058
  58. HYDROXYCHLOROQUINE [Concomitant]
     Active Substance: HYDROXYCHLOROQUINE
     Route: 048
  59. HYDROXYCHLOROQUINE [Concomitant]
     Active Substance: HYDROXYCHLOROQUINE
  60. IBUPROFEN [Concomitant]
     Active Substance: IBUPROFEN
     Indication: Product used for unknown indication
  61. IBUPROFEN [Concomitant]
     Active Substance: IBUPROFEN
  62. INFLIXIMAB [Concomitant]
     Active Substance: INFLIXIMAB
     Indication: Rheumatoid arthritis
  63. INFLIXIMAB [Concomitant]
     Active Substance: INFLIXIMAB
     Indication: Psoriatic arthropathy
     Route: 041
  64. INFLIXIMAB [Concomitant]
     Active Substance: INFLIXIMAB
  65. INFLIXIMAB [Concomitant]
     Active Substance: INFLIXIMAB
     Route: 041
  66. ISOPROPYL ALCOHOL [Concomitant]
     Active Substance: ISOPROPYL ALCOHOL
     Indication: Product used for unknown indication
     Dosage: LIQUID TOPICAL
  67. LISINOPRIL [Concomitant]
     Active Substance: LISINOPRIL
     Indication: Product used for unknown indication
  68. LYRICA [Concomitant]
     Active Substance: PREGABALIN
     Indication: Product used for unknown indication
  69. METHOTREXATE [Concomitant]
     Active Substance: METHOTREXATE
     Indication: Rheumatoid arthritis
     Route: 058
  70. METHOTREXATE [Concomitant]
     Active Substance: METHOTREXATE
     Dosage: LIQUID TOPICAL
     Route: 048
  71. METHOTREXATE [Concomitant]
     Active Substance: METHOTREXATE
     Route: 041
  72. METHOTREXATE [Concomitant]
     Active Substance: METHOTREXATE
     Route: 048
  73. METHOTREXATE [Concomitant]
     Active Substance: METHOTREXATE
     Route: 048
  74. METHOTREXATE [Concomitant]
     Active Substance: METHOTREXATE
     Route: 013
  75. METHOTREXATE [Concomitant]
     Active Substance: METHOTREXATE
  76. METHOTREXATE [Concomitant]
     Active Substance: METHOTREXATE
     Route: 048
  77. METHOTREXATE [Concomitant]
     Active Substance: METHOTREXATE
     Route: 048
  78. METHOTREXATE [Concomitant]
     Active Substance: METHOTREXATE
     Route: 048
  79. METHOTREXATE [Concomitant]
     Active Substance: METHOTREXATE
     Route: 048
  80. METHOTREXATE [Concomitant]
     Active Substance: METHOTREXATE
     Route: 048
  81. METHOTREXATE [Concomitant]
     Active Substance: METHOTREXATE
     Route: 048
  82. METHOTREXATE [Concomitant]
     Active Substance: METHOTREXATE
     Route: 048
  83. METHOTREXATE [Concomitant]
     Active Substance: METHOTREXATE
     Route: 048
  84. METHOTREXATE [Concomitant]
     Active Substance: METHOTREXATE
     Route: 048
  85. METHOTREXATE [Concomitant]
     Active Substance: METHOTREXATE
     Route: 048
  86. METHOTREXATE [Concomitant]
     Active Substance: METHOTREXATE
  87. METHOTREXATE [Concomitant]
     Active Substance: METHOTREXATE
     Route: 048
  88. METHOTREXATE [Concomitant]
     Active Substance: METHOTREXATE
     Route: 048
  89. METHOTREXATE [Concomitant]
     Active Substance: METHOTREXATE
  90. METHOTREXATE [Concomitant]
     Active Substance: METHOTREXATE
     Route: 058
  91. METHOTREXATE [Concomitant]
     Active Substance: METHOTREXATE
     Route: 013
  92. METHOTREXATE [Concomitant]
     Active Substance: METHOTREXATE
     Route: 013
  93. METHOTREXATE [Concomitant]
     Active Substance: METHOTREXATE
  94. METHOTREXATE [Concomitant]
     Active Substance: METHOTREXATE
  95. METHOTREXATE [Concomitant]
     Active Substance: METHOTREXATE
     Route: 048
  96. METHOTREXATE [Concomitant]
     Active Substance: METHOTREXATE
  97. METHOTREXATE [Concomitant]
     Active Substance: METHOTREXATE
  98. METHOTREXATE [Concomitant]
     Active Substance: METHOTREXATE
     Route: 058
  99. METHOTREXATE [Concomitant]
     Active Substance: METHOTREXATE
     Route: 013
  100. METHOTREXATE [Concomitant]
     Active Substance: METHOTREXATE
     Route: 013
  101. METHOTREXATE [Concomitant]
     Active Substance: METHOTREXATE
  102. METHOTREXATE [Concomitant]
     Active Substance: METHOTREXATE
  103. METHOTREXATE [Concomitant]
     Active Substance: METHOTREXATE
  104. METHOTREXATE [Concomitant]
     Active Substance: METHOTREXATE
     Route: 041
  105. METHOTREXATE [Concomitant]
     Active Substance: METHOTREXATE
     Route: 058
  106. METHOTREXATE [Concomitant]
     Active Substance: METHOTREXATE
     Route: 013
  107. METHOTREXATE [Concomitant]
     Active Substance: METHOTREXATE
     Route: 048
  108. METHOTREXATE [Concomitant]
     Active Substance: METHOTREXATE
  109. METHOTREXATE [Concomitant]
     Active Substance: METHOTREXATE
     Route: 058
  110. METHOTREXATE [Concomitant]
     Active Substance: METHOTREXATE
     Route: 013
  111. METHOTREXATE [Concomitant]
     Active Substance: METHOTREXATE
     Route: 016
  112. METHYLPREDNISOLONE SODIUM SUCCINATE [Concomitant]
     Active Substance: METHYLPREDNISOLONE SODIUM SUCCINATE
     Indication: Product used for unknown indication
  113. MESALAMINE [Concomitant]
     Active Substance: MESALAMINE
     Indication: Product used for unknown indication
     Dosage: DELAYED AND EXTENDED RELEASE
  114. NAPROXEN [Concomitant]
     Active Substance: NAPROXEN
     Indication: Product used for unknown indication
  115. NAPROXEN SODIUM [Concomitant]
     Active Substance: NAPROXEN SODIUM
     Indication: Rheumatoid arthritis
  116. NAPROXEN SODIUM [Concomitant]
     Active Substance: NAPROXEN SODIUM
  117. NEOMYCIN [Concomitant]
     Active Substance: NEOMYCIN
     Indication: Product used for unknown indication
  118. OTEZLA [Concomitant]
     Active Substance: APREMILAST
     Indication: Product used for unknown indication
  119. OXYCODONE [Concomitant]
     Active Substance: OXYCODONE
     Indication: Product used for unknown indication
     Route: 042
  120. OXYCODONE [Concomitant]
     Active Substance: OXYCODONE
  121. OXYCODONE [Concomitant]
     Active Substance: OXYCODONE
  122. OXYCODONE TEREPHTHALATE [Concomitant]
     Active Substance: OXYCODONE TEREPHTHALATE
     Indication: Product used for unknown indication
  123. PERIOGARD [Concomitant]
     Active Substance: CHLORHEXIDINE GLUCONATE
     Indication: Product used for unknown indication
  124. PERIOGARD [Concomitant]
     Active Substance: CHLORHEXIDINE GLUCONATE
     Route: 016
  125. PERIOGARD [Concomitant]
     Active Substance: CHLORHEXIDINE GLUCONATE
     Route: 048
  126. PHTHALYLSULFATHIAZOLE [Concomitant]
     Active Substance: PHTHALYLSULFATHIAZOLE
     Indication: Rheumatoid arthritis
     Route: 041
  127. PHTHALYLSULFATHIAZOLE [Concomitant]
     Active Substance: PHTHALYLSULFATHIAZOLE
     Route: 048
  128. PHTHALYLSULFATHIAZOLE [Concomitant]
     Active Substance: PHTHALYLSULFATHIAZOLE
     Route: 048
  129. PHTHALYLSULFATHIAZOLE [Concomitant]
     Active Substance: PHTHALYLSULFATHIAZOLE
     Route: 048
  130. PHTHALYLSULFATHIAZOLE [Concomitant]
     Active Substance: PHTHALYLSULFATHIAZOLE
     Route: 048
  131. PHTHALYLSULFATHIAZOLE [Concomitant]
     Active Substance: PHTHALYLSULFATHIAZOLE
     Route: 048
  132. PHTHALYLSULFATHIAZOLE [Concomitant]
     Active Substance: PHTHALYLSULFATHIAZOLE
  133. PHTHALYLSULFATHIAZOLE [Concomitant]
     Active Substance: PHTHALYLSULFATHIAZOLE
  134. PHTHALYLSULFATHIAZOLE [Concomitant]
     Active Substance: PHTHALYLSULFATHIAZOLE
     Route: 048
  135. PHTHALYLSULFATHIAZOLE [Concomitant]
     Active Substance: PHTHALYLSULFATHIAZOLE
     Route: 048
  136. PHTHALYLSULFATHIAZOLE [Concomitant]
     Active Substance: PHTHALYLSULFATHIAZOLE
     Route: 048
  137. PHTHALYLSULFATHIAZOLE [Concomitant]
     Active Substance: PHTHALYLSULFATHIAZOLE
     Route: 058
  138. PHTHALYLSULFATHIAZOLE [Concomitant]
     Active Substance: PHTHALYLSULFATHIAZOLE
  139. PHTHALYLSULFATHIAZOLE [Concomitant]
     Active Substance: PHTHALYLSULFATHIAZOLE
     Route: 016
  140. PLAQUENIL [Concomitant]
     Active Substance: HYDROXYCHLOROQUINE SULFATE
     Indication: Product used for unknown indication
  141. PREDNISOLONE [Concomitant]
     Active Substance: PREDNISOLONE
     Indication: Product used for unknown indication
  142. PREDNISONE [Concomitant]
     Active Substance: PREDNISONE
     Indication: Systemic lupus erythematosus
     Route: 041
  143. PREDNISONE [Concomitant]
     Active Substance: PREDNISONE
     Indication: Synovitis
     Route: 048
  144. PREDNISONE [Concomitant]
     Active Substance: PREDNISONE
     Indication: Rheumatoid arthritis
  145. PREDNISONE [Concomitant]
     Active Substance: PREDNISONE
     Indication: Psoriatic arthropathy
  146. PREDNISONE [Concomitant]
     Active Substance: PREDNISONE
     Indication: Pemphigus
  147. PREDNISONE [Concomitant]
     Active Substance: PREDNISONE
     Indication: Condition aggravated
     Route: 048
  148. PREDNISONE [Concomitant]
     Active Substance: PREDNISONE
     Route: 048
  149. PREDNISONE [Concomitant]
     Active Substance: PREDNISONE
     Route: 048
  150. PREDNISONE [Concomitant]
     Active Substance: PREDNISONE
     Route: 048
  151. PREDNISONE [Concomitant]
     Active Substance: PREDNISONE
  152. PSEUDOEPHEDRINE [Concomitant]
     Active Substance: PSEUDOEPHEDRINE
     Indication: Product used for unknown indication
  153. PSEUDOEPHEDRINE HYDROCHLORIDE [Concomitant]
     Active Substance: PSEUDOEPHEDRINE HYDROCHLORIDE
     Indication: Rheumatoid arthritis
  154. PSEUDOEPHEDRINE HYDROCHLORIDE [Concomitant]
     Active Substance: PSEUDOEPHEDRINE HYDROCHLORIDE
  155. PSEUDOEPHEDRINE HYDROCHLORIDE [Concomitant]
     Active Substance: PSEUDOEPHEDRINE HYDROCHLORIDE
  156. RAMIPRIL [Concomitant]
     Active Substance: RAMIPRIL
     Indication: Product used for unknown indication
  157. REACTINE [Concomitant]
     Indication: Urticaria
     Route: 016
  158. REACTINE [Concomitant]
     Indication: Rheumatoid arthritis
     Route: 016
  159. REACTINE [Concomitant]
  160. REACTINE [Concomitant]
  161. REACTINE [Concomitant]
     Route: 048
  162. REACTINE [Concomitant]
     Route: 005
  163. REACTINE [Concomitant]
  164. CETIRIZINE HYDROCHLORIDE\PSEUDOEPHEDRINE HYDROCHLORIDE [Concomitant]
     Active Substance: CETIRIZINE HYDROCHLORIDE\PSEUDOEPHEDRINE HYDROCHLORIDE
     Indication: Product used for unknown indication
     Dosage: EXTENDED RELEASE
  165. REMICADE [Concomitant]
     Active Substance: INFLIXIMAB
     Indication: Rheumatoid arthritis
     Route: 042
  166. REMICADE [Concomitant]
     Active Substance: INFLIXIMAB
     Dosage: POWDER FOR SOLUTION FOR INTRAVENOUS
  167. RITUXIMAB [Concomitant]
     Active Substance: RITUXIMAB
     Indication: Rheumatoid arthritis
     Route: 041
  168. RITUXIMAB [Concomitant]
     Active Substance: RITUXIMAB
  169. RITUXIMAB [Concomitant]
     Active Substance: RITUXIMAB
  170. RITUXIMAB [Concomitant]
     Active Substance: RITUXIMAB
  171. RITUXIMAB [Concomitant]
     Active Substance: RITUXIMAB
     Route: 058
  172. DIETARY SUPPLEMENT\HERBALS [Concomitant]
     Active Substance: DIETARY SUPPLEMENT\HERBALS
     Indication: Product used for unknown indication
  173. APREMILAST [Concomitant]
     Active Substance: APREMILAST
     Indication: Product used for unknown indication
  174. DICLOFENAC SODIUM [Concomitant]
     Active Substance: DICLOFENAC SODIUM
     Indication: Rheumatoid arthritis
     Route: 058
  175. DICLOFENAC SODIUM [Concomitant]
     Active Substance: DICLOFENAC SODIUM
     Route: 048
  176. DICLOFENAC SODIUM [Concomitant]
     Active Substance: DICLOFENAC SODIUM
  177. DICLOFENAC SODIUM [Concomitant]
     Active Substance: DICLOFENAC SODIUM
  178. DICLOFENAC SODIUM [Concomitant]
     Active Substance: DICLOFENAC SODIUM
  179. DICLOFENAC SODIUM [Concomitant]
     Active Substance: DICLOFENAC SODIUM
  180. DICLOFENAC SODIUM [Concomitant]
     Active Substance: DICLOFENAC SODIUM
  181. DICLOFENAC SODIUM [Concomitant]
     Active Substance: DICLOFENAC SODIUM
  182. DICLOFENAC SODIUM [Concomitant]
     Active Substance: DICLOFENAC SODIUM
     Route: 047
  183. DICLOFENAC SODIUM [Concomitant]
     Active Substance: DICLOFENAC SODIUM
     Route: 047
  184. HYDROCORTISONE [Concomitant]
     Active Substance: HYDROCORTISONE
     Indication: Rheumatoid arthritis
  185. HYDROCORTISONE [Concomitant]
     Active Substance: HYDROCORTISONE
  186. HYDROCORTISONE [Concomitant]
     Active Substance: HYDROCORTISONE
  187. HYDROCORTISONE [Concomitant]
     Active Substance: HYDROCORTISONE
     Route: 058
  188. HYDROCORTISONE [Concomitant]
     Active Substance: HYDROCORTISONE
     Route: 058
  189. HYDROCORTISONE [Concomitant]
     Active Substance: HYDROCORTISONE
  190. HYDROCORTISONE [Concomitant]
     Active Substance: HYDROCORTISONE
     Route: 048
  191. MOXIFLOXACIN HYDROCHLORIDE [Concomitant]
     Active Substance: MOXIFLOXACIN HYDROCHLORIDE
     Indication: Product used for unknown indication
     Dosage: SOLUTION OPHTHALMIC
     Route: 058
  192. MYCOPHENOLATE MOFETIL [Concomitant]
     Active Substance: MYCOPHENOLATE MOFETIL
     Indication: Product used for unknown indication
  193. PANTOPRAZOLE SODIUM [Concomitant]
     Active Substance: PANTOPRAZOLE SODIUM
     Indication: Product used for unknown indication
     Dosage: DELAYED RELEASE
  194. PANTOPRAZOLE SODIUM [Concomitant]
     Active Substance: PANTOPRAZOLE SODIUM
     Route: 016
  195. PANTOPRAZOLE SODIUM [Concomitant]
     Active Substance: PANTOPRAZOLE SODIUM
  196. PREGABALIN [Concomitant]
     Active Substance: PREGABALIN
     Indication: Product used for unknown indication
  197. SIMPONI [Concomitant]
     Active Substance: GOLIMUMAB
     Indication: Rheumatoid arthritis
     Route: 052
  198. SIMPONI [Concomitant]
     Active Substance: GOLIMUMAB
     Route: 042
  199. SIMPONI [Concomitant]
     Active Substance: GOLIMUMAB
  200. SIMPONI [Concomitant]
     Active Substance: GOLIMUMAB
     Route: 058
  201. SIMPONI [Concomitant]
     Active Substance: GOLIMUMAB
     Dosage: SOLUTION SUBCUTANEOUS
  202. STELARA [Concomitant]
     Active Substance: USTEKINUMAB
     Indication: Product used for unknown indication
     Dosage: SOLUTION SUBCUTANEOUS
  203. SULFAMETHOXAZOLE [Concomitant]
     Active Substance: SULFAMETHOXAZOLE
     Indication: Product used for unknown indication
     Route: 042
  204. SULFAMETHOXAZOLE AND TRIMETHOPRIM [Concomitant]
     Active Substance: SULFAMETHOXAZOLE\TRIMETHOPRIM
     Indication: Product used for unknown indication
  205. SULFAMETHOXAZOLE AND TRIMETHOPRIM [Concomitant]
     Active Substance: SULFAMETHOXAZOLE\TRIMETHOPRIM
     Route: 067
  206. SULFASALAZINE [Concomitant]
     Active Substance: SULFASALAZINE
     Indication: Rheumatoid arthritis
     Route: 058
  207. SULFASALAZINE [Concomitant]
     Active Substance: SULFASALAZINE
     Route: 058
  208. SULFASALAZINE [Concomitant]
     Active Substance: SULFASALAZINE
     Route: 058
  209. SULFASALAZINE [Concomitant]
     Active Substance: SULFASALAZINE
  210. SULFASALAZINE [Concomitant]
     Active Substance: SULFASALAZINE
  211. SULFASALAZINE [Concomitant]
     Active Substance: SULFASALAZINE
  212. SULFASALAZINE [Concomitant]
     Active Substance: SULFASALAZINE
  213. SULFASALAZINE [Concomitant]
     Active Substance: SULFASALAZINE
  214. SULFASALAZINE [Concomitant]
     Active Substance: SULFASALAZINE
     Route: 048
  215. SULFASALAZINE [Concomitant]
     Active Substance: SULFASALAZINE
     Route: 048
  216. SULFASALAZINE [Concomitant]
     Active Substance: SULFASALAZINE
     Route: 048
  217. SULFASALAZINE [Concomitant]
     Active Substance: SULFASALAZINE
     Route: 048
  218. SULFASALAZINE [Concomitant]
     Active Substance: SULFASALAZINE
     Route: 048
  219. SULFASALAZINE [Concomitant]
     Active Substance: SULFASALAZINE
     Route: 048
  220. SULFASALAZINE [Concomitant]
     Active Substance: SULFASALAZINE
     Route: 048
  221. SULFASALAZINE [Concomitant]
     Active Substance: SULFASALAZINE
     Route: 048
  222. SULFASALAZINE [Concomitant]
     Active Substance: SULFASALAZINE
     Route: 048
  223. SULFASALAZINE [Concomitant]
     Active Substance: SULFASALAZINE
     Route: 048
  224. SULFASALAZINE [Concomitant]
     Active Substance: SULFASALAZINE
  225. SULFASALAZINE [Concomitant]
     Active Substance: SULFASALAZINE
  226. SULFASALAZINE [Concomitant]
     Active Substance: SULFASALAZINE
     Route: 048
  227. VITAMIN C [Concomitant]
     Active Substance: ASCORBIC ACID
     Indication: Product used for unknown indication
  228. VITAMIN C [Concomitant]
     Active Substance: ASCORBIC ACID
  229. VOLTAREN [Concomitant]
     Active Substance: DICLOFENAC SODIUM
     Indication: Product used for unknown indication
  230. PREDNISONE [Concomitant]
     Active Substance: PREDNISONE
     Indication: Rheumatoid arthritis
     Route: 048
  231. XELJANZ [Concomitant]
     Active Substance: TOFACITINIB CITRATE
     Indication: Rheumatoid arthritis
     Route: 048
  232. XELJANZ [Concomitant]
     Active Substance: TOFACITINIB CITRATE
  233. XELJANZ [Concomitant]
     Active Substance: TOFACITINIB CITRATE
  234. XELJANZ [Concomitant]
     Active Substance: TOFACITINIB CITRATE
  235. XELJANZ [Concomitant]
     Active Substance: TOFACITINIB CITRATE
  236. XELJANZ [Concomitant]
     Active Substance: TOFACITINIB CITRATE
     Route: 048

REACTIONS (15)
  - Exostosis [Unknown]
  - Facet joint syndrome [Unknown]
  - Fatigue [Unknown]
  - Feeling hot [Unknown]
  - Fibromyalgia [Unknown]
  - Fluid retention [Unknown]
  - Folliculitis [Unknown]
  - Foot deformity [Unknown]
  - Frequent bowel movements [Unknown]
  - Gait disturbance [Unknown]
  - Gastrointestinal disorder [Unknown]
  - General symptom [Unknown]
  - Hospitalisation [Unknown]
  - Adverse event [Unknown]
  - Off label use [Unknown]
